FAERS Safety Report 7302157-1 (Version None)
Quarter: 2011Q1

REPORT INFORMATION
  Report Type: 
  Country: None (occurrence: None)
  Receive Date: 20110207
  Receipt Date: 20110128
  Transmission Date: 20110831
  Serious: Yes (Hospitalization, Disabling, Other)
  Sender: FDA-Public Use
  Company Number: 2010SP050517

PATIENT
  Age: 28 Year
  Sex: Female
  Weight: 47.6277 kg

DRUGS (4)
  1. COUMADIN [Suspect]
     Indication: THROMBOSIS
  2. COLAZAL [Concomitant]
  3. PREFNISONE [Concomitant]
  4. NUVARING [Suspect]
     Indication: CONTRACEPTION
     Dosage: 1 DF;QM
     Dates: start: 20031001

REACTIONS (19)
  - COLITIS ULCERATIVE [None]
  - IMPAIRED WORK ABILITY [None]
  - LOWER GASTROINTESTINAL HAEMORRHAGE [None]
  - ALOPECIA [None]
  - PSEUDOPOLYP [None]
  - ANXIETY [None]
  - HAEMORRHOIDS [None]
  - HYDROURETER [None]
  - IRON DEFICIENCY ANAEMIA [None]
  - INTERNATIONAL NORMALISED RATIO INCREASED [None]
  - INSOMNIA [None]
  - SINUS TACHYCARDIA [None]
  - RENAL VEIN THROMBOSIS [None]
  - GENITAL CANDIDIASIS [None]
  - ANAEMIA VITAMIN B12 DEFICIENCY [None]
  - INCREASED TENDENCY TO BRUISE [None]
  - DEEP VEIN THROMBOSIS [None]
  - NEPHROLITHIASIS [None]
  - PELVIC VENOUS THROMBOSIS [None]
